FAERS Safety Report 9136021 (Version 1)
Quarter: 2013Q1

REPORT INFORMATION
  Report Type: Spontaneous
  Country: US (occurrence: US)
  Receive Date: 20130304
  Receipt Date: 20130304
  Transmission Date: 20140127
  Serious: No
  Sender: FDA-Public Use
  Company Number: US-ABBOTT-12P-163-1015418-00

PATIENT
  Age: 72 None
  Sex: Male

DRUGS (12)
  1. ANDROGEL [Suspect]
     Indication: BLOOD TESTOSTERONE DECREASED
     Dosage: 3 PUMPS PER DAY
     Route: 061
     Dates: start: 2005, end: 20121106
  2. ANDROGEL [Suspect]
     Dosage: 4 PUMPS
     Route: 061
     Dates: start: 20121107
  3. ANDROGEL [Suspect]
     Route: 061
     Dates: start: 20121113
  4. CRESTOR [Concomitant]
     Indication: BLOOD CHOLESTEROL INCREASED
     Dosage: UNKNOWN
  5. CROMOLYN [Concomitant]
     Indication: RHINITIS ALLERGIC
     Dosage: UNKNOWN
  6. FLUTICASONE [Concomitant]
     Indication: RHINITIS ALLERGIC
     Dosage: UNKNOWN
  7. ASPIRIN [Concomitant]
     Indication: ANTI-PLATELET ANTIBODY
     Dosage: UNKNOWN
  8. FISH OIL [Concomitant]
     Indication: SUPPLEMENTATION THERAPY
     Dosage: UNKNOWN
  9. MVI [Concomitant]
     Indication: PRODUCT USED FOR UNKNOWN INDICATION
     Dosage: UNKNOWN
  10. VITAMIN D [Concomitant]
     Indication: VITAMIN SUPPLEMENTATION
     Dosage: UNKNOWN
  11. LORATADINE [Concomitant]
     Indication: RHINITIS ALLERGIC
     Dosage: UNKNOWN
  12. VICKS VAPORUB [Concomitant]
     Indication: ONYCHOMYCOSIS
     Dosage: UNKNOWN

REACTIONS (8)
  - Product quality issue [Recovered/Resolved]
  - Blood testosterone decreased [Recovered/Resolved]
  - Blood testosterone decreased [Recovered/Resolved]
  - Blood testosterone decreased [Recovered/Resolved]
  - Investigation abnormal [Recovered/Resolved]
  - Blood testosterone decreased [Recovered/Resolved]
  - Device failure [Unknown]
  - Product packaging quantity issue [Unknown]
